FAERS Safety Report 6248284-1 (Version None)
Quarter: 2009Q2

REPORT INFORMATION
  Report Type: 
  Country: None (occurrence: None)
  Receive Date: 20090629
  Receipt Date: 20090616
  Transmission Date: 20091009
  Serious: Yes (Other)
  Sender: FDA-Public Use
  Company Number: PHHY2009BR24200

PATIENT
  Sex: Female

DRUGS (2)
  1. ACLASTA [Suspect]
  2. ANTIHYPERTENSIVE DRUGS [Concomitant]

REACTIONS (1)
  - CARDIOMYOPATHY [None]
